FAERS Safety Report 7009287-2 (Version None)
Quarter: 2010Q3

REPORT INFORMATION
  Report Type: 
  Country: None (occurrence: None)
  Receive Date: 20100921
  Receipt Date: 20100915
  Transmission Date: 20110219
  Serious: Yes (Other)
  Sender: FDA-Public Use
  Company Number: 2010US003514

PATIENT
  Age: 50 Year
  Sex: Female

DRUGS (2)
  1. VIBATIV [Suspect]
     Indication: STAPHYLOCOCCAL BACTERAEMIA
     Dosage: 950 MG, UID/QD, IV NOS
     Dates: start: 20100821, end: 20100830
  2. VANCOMYCIN [Concomitant]

REACTIONS (5)
  - ALANINE AMINOTRANSFERASE INCREASED [None]
  - ASPARTATE AMINOTRANSFERASE INCREASED [None]
  - BLOOD ALKALINE PHOSPHATASE INCREASED [None]
  - BLOOD BILIRUBIN INCREASED [None]
  - HEPATOTOXICITY [None]
